FAERS Safety Report 24659169 (Version 1)
Quarter: 2024Q4

REPORT INFORMATION
  Report Type: Spontaneous
  Country: SE (occurrence: SE)
  Receive Date: 20241125
  Receipt Date: 20241125
  Transmission Date: 20250115
  Serious: Yes (Hospitalization)
  Sender: MYLAN
  Company Number: None

PATIENT
  Age: 94 Year
  Sex: Female

DRUGS (1)
  1. METOPROLOL [Suspect]
     Active Substance: METOPROLOL
     Indication: Product used for unknown indication
     Dosage: UNK
     Route: 065
     Dates: end: 202408

REACTIONS (3)
  - Disorientation [Unknown]
  - Confusional state [Recovered/Resolved]
  - Hallucination, visual [Unknown]

NARRATIVE: CASE EVENT DATE: 20240801
